FAERS Safety Report 19387977 (Version 1)
Quarter: 2021Q2

REPORT INFORMATION
  Report Type: Spontaneous
  Country: US (occurrence: US)
  Receive Date: 20210607
  Receipt Date: 20210607
  Transmission Date: 20210717
  Serious: No
  Sender: FDA-Public Use
  Company Number: None

PATIENT
  Sex: Female

DRUGS (33)
  1. ALBUTEROL HFA [Concomitant]
     Active Substance: ALBUTEROL SULFATE
  2. CEFDINIR. [Concomitant]
     Active Substance: CEFDINIR
  3. FEROSUL [Concomitant]
     Active Substance: FERROUS SULFATE
  4. HYDROCORT (HYDROCORTISONE) [Concomitant]
     Active Substance: HYDROCORTISONE
  5. NITROFURANTIN [Concomitant]
     Active Substance: NITROFURANTOIN
  6. PREGABALIN. [Concomitant]
     Active Substance: PREGABALIN
  7. VENLAFAXINE ER [Concomitant]
     Active Substance: VENLAFAXINE HYDROCHLORIDE
  8. CEPHALEXIN. [Concomitant]
     Active Substance: CEPHALEXIN
  9. PREDNISONE. [Concomitant]
     Active Substance: PREDNISONE
  10. VITAMIN B12 [Concomitant]
     Active Substance: CYANOCOBALAMIN
  11. DIAZEPAM. [Concomitant]
     Active Substance: DIAZEPAM
  12. LACTULOSE. [Concomitant]
     Active Substance: LACTULOSE
  13. AUSTEDO [Suspect]
     Active Substance: DEUTETRABENAZINE
     Dosage: WITH 6 MG TOTAL 15MG
     Route: 048
     Dates: start: 20200509
  14. FLUDROCORT [Concomitant]
  15. PANTOPRAZOLE [Concomitant]
     Active Substance: PANTOPRAZOLE
  16. DULERA [Concomitant]
     Active Substance: FORMOTEROL FUMARATE DIHYDRATE\MOMETASONE FUROATE
  17. ELETRIPTAN. [Concomitant]
     Active Substance: ELETRIPTAN
  18. FLUTICASONE SPR [Concomitant]
  19. REXULTI [Concomitant]
     Active Substance: BREXPIPRAZOLE
  20. SMZ/TMP DS [Concomitant]
     Active Substance: SULFAMETHOXAZOLE\TRIMETHOPRIM
  21. AUSTEDO [Suspect]
     Active Substance: DEUTETRABENAZINE
     Indication: HUNTINGTON^S DISEASE
     Dosage: WITH 9 MG TOTAL 15 MG
     Route: 048
     Dates: start: 20200509
  22. AJOVY [Concomitant]
     Active Substance: FREMANEZUMAB-VFRM
  23. DICLOFENAC GEL [Concomitant]
     Active Substance: DICLOFENAC
  24. DOCUSATE SOD [Concomitant]
  25. OXYCODONE AND ACETAMINOPHEN [Concomitant]
     Active Substance: ACETAMINOPHEN\OXYCODONE HYDROCHLORIDE
  26. STIMULANT [Concomitant]
     Active Substance: UNSPECIFIED INGREDIENT
  27. LEVOFLOXACIN. [Concomitant]
     Active Substance: LEVOFLOXACIN
  28. PROPRANOLOL [Concomitant]
     Active Substance: PROPRANOLOL HYDROCHLORIDE
  29. POT CHLORIDE ER [Concomitant]
  30. AMLODIPIE [Concomitant]
  31. DICYCLOMINE [Concomitant]
     Active Substance: DICYCLOMINE HYDROCHLORIDE
  32. PROMETHAZINE [Concomitant]
     Active Substance: PROMETHAZINE HYDROCHLORIDE
  33. TIZANIDINE. [Concomitant]
     Active Substance: TIZANIDINE

REACTIONS (2)
  - Product dispensing error [None]
  - Incorrect dose administered [None]
